FAERS Safety Report 9362843 (Version 1)
Quarter: 2013Q2

REPORT INFORMATION
  Report Type: Spontaneous
  Country: US (occurrence: US)
  Receive Date: 20130624
  Receipt Date: 20130624
  Transmission Date: 20140414
  Serious: Yes (Other)
  Sender: FDA-Public Use
  Company Number: US-B.I. PHARMACEUTICALS,INC./RIDGEFIELD-2013-BI-17489BP

PATIENT
  Age: 77 Year
  Sex: Female
  Weight: 88 kg

DRUGS (7)
  1. SPIRIVA [Suspect]
     Indication: CHRONIC OBSTRUCTIVE PULMONARY DISEASE
     Dosage: 18 MCG
     Route: 048
     Dates: start: 2008
  2. FOSAMAX [Concomitant]
     Dosage: 70 MG
     Route: 048
  3. SINGULAIR [Concomitant]
     Dosage: 10 MG
     Route: 048
  4. XANAX [Concomitant]
     Indication: ANXIETY
     Route: 048
  5. AMBIEN [Concomitant]
     Indication: INSOMNIA
     Dosage: 5 MG
     Route: 048
  6. NEXIUM [Concomitant]
     Indication: GASTROOESOPHAGEAL REFLUX DISEASE
     Dosage: 40 MG
     Route: 048
  7. COMPAZINE [Concomitant]
     Route: 048

REACTIONS (4)
  - Lung neoplasm malignant [Not Recovered/Not Resolved]
  - Incorrect route of drug administration [Recovered/Resolved]
  - Rash [Not Recovered/Not Resolved]
  - Tooth infection [Not Recovered/Not Resolved]
